FAERS Safety Report 17772038 (Version 4)
Quarter: 2020Q2

REPORT INFORMATION
  Report Type: Report from Study
  Country: FR (occurrence: FR)
  Receive Date: 20200512
  Receipt Date: 20200609
  Transmission Date: 20200714
  Serious: Yes (Hospitalization, Other)
  Sender: FDA-Public Use
  Company Number: FR-SAMSUNG BIOEPIS-SB-2020-15339

PATIENT
  Age: 30 Year
  Sex: Female
  Weight: 59 kg

DRUGS (18)
  1. REMICADE [Suspect]
     Active Substance: INFLIXIMAB
     Route: 065
     Dates: start: 20160804
  2. MESALAZINE [Concomitant]
     Active Substance: MESALAMINE
     Indication: INFLAMMATORY BOWEL DISEASE
     Dosage: UNKNOWN
     Route: 065
     Dates: start: 201408
  3. AZATHIOPRINE. [Concomitant]
     Active Substance: AZATHIOPRINE
     Indication: INFLAMMATORY BOWEL DISEASE
     Route: 065
     Dates: start: 201611
  4. REMICADE [Suspect]
     Active Substance: INFLIXIMAB
     Route: 065
     Dates: start: 201506, end: 201601
  5. INFLIXIMAB [Suspect]
     Active Substance: INFLIXIMAB
     Dosage: UNKNOWN
     Route: 065
  6. ASPIRIN. [Concomitant]
     Active Substance: ASPIRIN
     Dosage: UNKNOWN
     Route: 061
  7. REMICADE [Suspect]
     Active Substance: INFLIXIMAB
     Indication: PRODUCT USED FOR UNKNOWN INDICATION
     Dosage: UNKNOWN
     Route: 065
     Dates: start: 20130322
  8. ASPIRIN. [Concomitant]
     Active Substance: ASPIRIN
     Indication: PRODUCT USED FOR UNKNOWN INDICATION
     Dosage: UNKNOWN
     Route: 048
  9. IMUREL [Concomitant]
     Active Substance: AZATHIOPRINE SODIUM
     Indication: PRODUCT USED FOR UNKNOWN INDICATION
     Route: 065
  10. INFLIXIMAB [Suspect]
     Active Substance: INFLIXIMAB
     Indication: INFLAMMATORY BOWEL DISEASE
     Dosage: UNKNOWN
     Route: 065
     Dates: start: 20160804, end: 201903
  11. PENTASA [Concomitant]
     Active Substance: MESALAMINE
     Indication: INFLAMMATORY BOWEL DISEASE
     Route: 065
  12. DIPENTUM [Concomitant]
     Active Substance: OLSALAZINE SODIUM
     Indication: PRODUCT USED FOR UNKNOWN INDICATION
     Dosage: UNKNOWN
     Route: 065
  13. CHOLURSO [Concomitant]
     Active Substance: URSODIOL
     Indication: PRODUCT USED FOR UNKNOWN INDICATION
     Route: 065
  14. CHOLURSO [Concomitant]
     Active Substance: URSODIOL
     Dosage: UNKNOWN
     Route: 065
  15. SOLUPRED [Concomitant]
     Indication: PRODUCT USED FOR UNKNOWN INDICATION
     Dosage: UNKNOWN, SUPPOSITORY
     Route: 065
  16. ASPIRIN. [Concomitant]
     Active Substance: ASPIRIN
     Dosage: UNKNOWN, SUPPOSITORY
     Route: 065
  17. FLIXABI [Suspect]
     Active Substance: INFLIXIMAB
     Indication: COLITIS ULCERATIVE
     Route: 042
     Dates: start: 20180220
  18. FLIXABI [Suspect]
     Active Substance: INFLIXIMAB
     Indication: ANKYLOSING SPONDYLITIS
     Dosage: UNKNOWN
     Route: 065

REACTIONS (9)
  - Nasal crusting [Unknown]
  - Drug eruption [Not Recovered/Not Resolved]
  - Therapeutic response shortened [Unknown]
  - Enterocolitis haemorrhagic [Unknown]
  - Gene mutation [Unknown]
  - Acute febrile neutrophilic dermatosis [Unknown]
  - Cholelithiasis [Unknown]
  - Lichen sclerosus [Unknown]
  - Product use issue [Unknown]

NARRATIVE: CASE EVENT DATE: 20180220
